FAERS Safety Report 9805688 (Version 1)
Quarter: 2014Q1

REPORT INFORMATION
  Report Type: Report from Study
  Country: FR (occurrence: FR)
  Receive Date: 20140109
  Receipt Date: 20140109
  Transmission Date: 20141002
  Serious: Yes (Hospitalization)
  Sender: FDA-Public Use
  Company Number: FR-SA-2014SA000906

PATIENT
  Age: 68 Year
  Sex: Male
  Weight: 88 kg

DRUGS (4)
  1. CABAZITAXEL [Suspect]
     Indication: PROSTATE CANCER
     Route: 042
     Dates: start: 20130614
  2. TRAMADOL [Concomitant]
     Indication: PAIN
     Route: 048
     Dates: start: 201302
  3. LEUPRORELIN [Concomitant]
     Indication: PROSTATE CANCER
     Dosage: 1 IN 3 MONTHS
     Route: 058
     Dates: start: 201104
  4. PREDNISONE [Concomitant]
     Indication: PROSTATE CANCER
     Route: 048
     Dates: start: 20130614

REACTIONS (2)
  - Pyelocaliectasis [Recovered/Resolved]
  - Ureteric dilatation [Recovered/Resolved]
